FAERS Safety Report 14861858 (Version 1)
Quarter: 2018Q2

REPORT INFORMATION
  Report Type: Spontaneous
  Country: AR (occurrence: AR)
  Receive Date: 20180508
  Receipt Date: 20180508
  Transmission Date: 20180711
  Serious: Yes (Other)
  Sender: FDA-Public Use
  Company Number: AR-BAYER-2018-081437

PATIENT
  Sex: Female

DRUGS (1)
  1. BLUSIRI [Suspect]
     Active Substance: LEVONORGESTREL
     Dosage: UNK
     Dates: start: 201712

REACTIONS (4)
  - Headache [Recovered/Resolved]
  - Viral infection [None]
  - Pyrexia [None]
  - Impaired quality of life [None]

NARRATIVE: CASE EVENT DATE: 201803
